FAERS Safety Report 15240402 (Version 1)
Quarter: 2018Q3

REPORT INFORMATION
  Report Type: Spontaneous
  Country: US (occurrence: US)
  Receive Date: 20180804
  Receipt Date: 20180804
  Transmission Date: 20181010
  Serious: No
  Sender: FDA-Public Use
  Company Number: US-009507513-1808USA001954

PATIENT
  Age: 15 Year
  Sex: Male

DRUGS (1)
  1. PRINIVIL [Suspect]
     Active Substance: LISINOPRIL
     Indication: NON-COMPACTION CARDIOMYOPATHY
     Dosage: 10 MG, DAILY

REACTIONS (1)
  - Product use in unapproved indication [Unknown]
